FAERS Safety Report 5669602-9 (Version None)
Quarter: 2008Q1

REPORT INFORMATION
  Report Type: 
  Country: None (occurrence: None)
  Receive Date: 20080317
  Receipt Date: 20080307
  Transmission Date: 20080703
  Serious: Yes (Death, Other)
  Sender: FDA-Public Use
  Company Number: PHBS2008TR03222

PATIENT
  Age: 17 Year
  Sex: Male

DRUGS (2)
  1. IMATINIB [Suspect]
     Indication: CHRONIC MYELOID LEUKAEMIA
     Dosage: 400 MG/D
     Route: 065
  2. IMATINIB [Suspect]
     Dosage: 600 MG/D
     Route: 065

REACTIONS (11)
  - ASTHENIA [None]
  - CHLOROMA [None]
  - CYTOGENETIC ANALYSIS ABNORMAL [None]
  - FATIGUE [None]
  - HAEMOGLOBIN DECREASED [None]
  - HEPATOSPLENOMEGALY [None]
  - MALIGNANT NEOPLASM PROGRESSION [None]
  - MASS [None]
  - OEDEMA [None]
  - SOFT TISSUE DISORDER [None]
  - WHITE BLOOD CELL COUNT DECREASED [None]
